FAERS Safety Report 19175888 (Version 5)
Quarter: 2022Q1

REPORT INFORMATION
  Report Type: Spontaneous
  Country: US (occurrence: US)
  Receive Date: 20210423
  Receipt Date: 20220215
  Transmission Date: 20220423
  Serious: Yes (Death, Hospitalization, Other)
  Sender: FDA-Public Use
  Company Number: US-PFIZER INC-2021349462

PATIENT
  Age: 65 Year
  Sex: Female

DRUGS (2)
  1. XELJANZ XR [Suspect]
     Active Substance: TOFACITINIB CITRATE
     Indication: Rheumatoid arthritis
     Dosage: 11 MG, 1X/DAY
     Route: 048
     Dates: start: 2019
  2. LEFLUNOMIDE [Concomitant]
     Active Substance: LEFLUNOMIDE
     Dosage: UNK

REACTIONS (8)
  - Non-small cell lung cancer [Fatal]
  - Lung neoplasm malignant [Fatal]
  - Brain cancer metastatic [Fatal]
  - Cognitive disorder [Recovering/Resolving]
  - Mobility decreased [Unknown]
  - Condition aggravated [Unknown]
  - Arthralgia [Unknown]
  - Memory impairment [Unknown]

NARRATIVE: CASE EVENT DATE: 20210101
